FAERS Safety Report 8097899-7 (Version None)
Quarter: 2012Q1

REPORT INFORMATION
  Report Type: 
  Country: None (occurrence: None)
  Receive Date: 20120128
  Receipt Date: 20110721
  Transmission Date: 20120608
  Serious: No
  Sender: FDA-Public Use
  Company Number: US-ABBOTT-11P-163-0840757-00

PATIENT
  Age: 14 Year
  Sex: Male

DRUGS (6)
  1. MELOXICAM [Concomitant]
     Indication: JUVENILE ARTHRITIS
     Dosage: AT BEDTIME
  2. OMEPRAZOLE [Concomitant]
     Indication: ABDOMINAL DISCOMFORT
  3. HUMIRA [Suspect]
     Indication: JUVENILE ARTHRITIS
     Dates: start: 20110601
  4. METHOTREXATE [Concomitant]
     Indication: JUVENILE ARTHRITIS
     Dosage: 25MG/1ML WEEKLY
     Route: 050
  5. AMITRIPTYLINE HCL [Concomitant]
     Indication: INSOMNIA
     Dosage: AT BEDTIME
  6. FOLIC ACID [Concomitant]
     Indication: VITAMIN SUPPLEMENTATION
     Dosage: DAILY

REACTIONS (2)
  - INJECTION SITE HAEMORRHAGE [None]
  - INJECTION SITE URTICARIA [None]
